FAERS Safety Report 9107484 (Version 2)
Quarter: 2013Q1

REPORT INFORMATION
  Report Type: Spontaneous
  Country: US (occurrence: US)
  Receive Date: 20130221
  Receipt Date: 20130226
  Transmission Date: 20140127
  Serious: Yes (Other)
  Sender: FDA-Public Use
  Company Number: PHEH2013US002190

PATIENT
  Age: 45 Year
  Sex: Female
  Weight: 68.27 kg

DRUGS (5)
  1. GILENYA [Suspect]
     Indication: MULTIPLE SCLEROSIS
     Dosage: 0.5 MG, QD
     Route: 048
     Dates: start: 2012
  2. MULTIVIT [Concomitant]
     Dosage: UNK UKN, QD
     Route: 048
  3. VIT D [Concomitant]
     Dosage: UNK UKN, QD
     Route: 048
  4. CALCIUM [Concomitant]
     Dosage: UNK UKN, QD
     Route: 048
  5. BENADRYL [Concomitant]
     Indication: HYPERSENSITIVITY
     Dosage: UNK UKN, PRN
     Route: 048

REACTIONS (4)
  - Optic neuritis [Recovered/Resolved]
  - Eye pain [Unknown]
  - Eye swelling [Unknown]
  - Ocular hyperaemia [Unknown]
